FAERS Safety Report 16140739 (Version 1)
Quarter: 2019Q2

REPORT INFORMATION
  Report Type: Spontaneous
  Country: US (occurrence: US)
  Receive Date: 20190329
  Receipt Date: 20190329
  Transmission Date: 20190711
  Serious: Yes (Other)
  Sender: FDA-Public Use
  Company Number: None

PATIENT
  Age: 58 Year
  Sex: Female
  Weight: 58.5 kg

DRUGS (5)
  1. ANTACIDS [Concomitant]
     Active Substance: UNSPECIFIED INGREDIENT
  2. PEPTO-BISMOL [Concomitant]
     Active Substance: BISMUTH SUBSALICYLATE
  3. ANTIBIOTICS [Concomitant]
     Active Substance: UNSPECIFIED INGREDIENT
  4. CEPHALEXIN/KEFLEX [Suspect]
     Active Substance: CEPHALEXIN
     Indication: DENTAL OPERATION
     Dosage: ?          QUANTITY:1 CAPSULE(S);?
     Route: 048
     Dates: start: 20190322, end: 20190328
  5. DAILY BABY ASPIRIN [Concomitant]

REACTIONS (5)
  - Extrasystoles [None]
  - Sleep disorder [None]
  - Asthenia [None]
  - Dizziness [None]
  - Heart rate decreased [None]

NARRATIVE: CASE EVENT DATE: 20190322
